FAERS Safety Report 16310054 (Version 16)
Quarter: 2019Q3

REPORT INFORMATION
  Report Type: Report from Study
  Country: AU (occurrence: AU)
  Receive Date: 20190514
  Receipt Date: 20190903
  Transmission Date: 20191004
  Serious: Yes (Hospitalization)
  Sender: FDA-Public Use
  Company Number: AU-EISAI MEDICAL RESEARCH-EC-2019-056270

PATIENT
  Age: 69 Year
  Sex: Female
  Weight: 37.4 kg

DRUGS (12)
  1. THIAMINE. [Concomitant]
     Active Substance: THIAMINE
     Dates: start: 201811
  2. NEXIUM [Concomitant]
     Active Substance: ESOMEPRAZOLE MAGNESIUM
     Dates: start: 201801
  3. ACETAMINOPHEN. [Concomitant]
     Active Substance: ACETAMINOPHEN
     Dates: start: 20190419, end: 20190419
  4. MAGNESIUM [Concomitant]
     Active Substance: MAGNESIUM
     Dates: start: 201811, end: 20190507
  5. LENVATINIB [Suspect]
     Active Substance: LENVATINIB
     Indication: HEPATOBILIARY CANCER
     Route: 048
     Dates: start: 20190417, end: 20190418
  6. LENVATINIB [Suspect]
     Active Substance: LENVATINIB
     Route: 048
     Dates: start: 20190420, end: 20190507
  7. PEMBROLIZUMAB. [Suspect]
     Active Substance: PEMBROLIZUMAB
     Indication: HEPATOBILIARY CANCER
     Route: 041
     Dates: start: 20190417, end: 20190417
  8. CREON [Concomitant]
     Active Substance: PANCRELIPASE AMYLASE\PANCRELIPASE LIPASE\PANCRELIPASE PROTEASE
     Dates: start: 20181101
  9. MEGA CALCIUM [Concomitant]
     Dates: start: 201812
  10. VITAMINS [Concomitant]
     Active Substance: VITAMINS
     Dates: start: 201812
  11. METOCLOPRAMIDE. [Concomitant]
     Active Substance: METOCLOPRAMIDE
     Dates: start: 20190419, end: 20190419
  12. VITAMIN D [Concomitant]
     Active Substance: VITAMIN D NOS
     Dates: start: 201812

REACTIONS (3)
  - Hypersensitivity myocarditis [Recovered/Resolved]
  - Diarrhoea [Recovered/Resolved]
  - Rectal haemorrhage [Recovered/Resolved]

NARRATIVE: CASE EVENT DATE: 20190502
